FAERS Safety Report 6895531-9 (Version None)
Quarter: 2010Q3

REPORT INFORMATION
  Report Type: 
  Country: None (occurrence: None)
  Receive Date: 20100802
  Receipt Date: 20100726
  Transmission Date: 20110219
  Serious: Yes (Hospitalization, Other)
  Sender: FDA-Public Use
  Company Number: PHHO2010US11029

PATIENT
  Age: 78 Year
  Sex: Male
  Weight: 81.7 kg

DRUGS (14)
  1. CGP 41251 T30685+CAPS [Suspect]
     Indication: MYELODYSPLASTIC SYNDROME
     Dosage: 50 MG, BID
     Route: 048
     Dates: start: 20100629
  2. CGP 41251 T30685+CAPS [Suspect]
     Dosage: UNK
     Route: 048
     Dates: start: 20100714
  3. AFINITOR [Suspect]
     Indication: MYELODYSPLASTIC SYNDROME
     Dosage: 05 MG, DAILY
     Route: 048
     Dates: start: 20100628
  4. AFINITOR [Suspect]
     Dosage: UNK
     Route: 048
     Dates: start: 20100714
  5. ASPIRIN [Concomitant]
     Dosage: 81 MG, QD
     Route: 048
  6. COUMADIN [Concomitant]
     Dosage: 7.5 MG, QD
  7. FISH OIL [Concomitant]
     Dosage: 1 GM, UNK
     Route: 048
  8. LORAZEPAM [Concomitant]
     Dosage: 0.5 MG, QD
     Route: 048
  9. NIASPAN [Concomitant]
     Route: 048
  10. MULTIVITAMIN [Concomitant]
     Dosage: 1 DF, BID
     Route: 048
  11. PRAVASTATIN [Concomitant]
     Dosage: 80 MG, UNK
     Route: 048
  12. MULTI-VITAMINS [Concomitant]
  13. TOPROL-XL [Concomitant]
     Dosage: 100 MG, QD
     Route: 048
  14. ZYMAR [Concomitant]

REACTIONS (5)
  - DYSPNOEA [None]
  - HYPOXIA [None]
  - LUNG CONSOLIDATION [None]
  - PLEURAL EFFUSION [None]
  - PNEUMONIA [None]
